FAERS Safety Report 6344696-6 (Version None)
Quarter: 2009Q3

REPORT INFORMATION
  Report Type: 
  Country: None (occurrence: None)
  Receive Date: 20090821
  Receipt Date: 20090603
  Transmission Date: 20100115
  Serious: No
  Sender: FDA-Public Use
  Company Number: 8046133

PATIENT
  Age: 28 Year
  Sex: Female
  Weight: 54.4 kg

DRUGS (7)
  1. CIMZIA [Suspect]
     Indication: CROHN'S DISEASE
     Dosage: 400 MG SC
     Route: 058
     Dates: start: 20080924
  2. NORCO [Concomitant]
  3. CLONAZEPAM [Concomitant]
  4. DICYCLOMINE [Concomitant]
  5. PROMETHAZINE [Concomitant]
  6. TRAZODONE [Concomitant]
  7. IBUPROFEN [Concomitant]

REACTIONS (10)
  - ASTHENIA [None]
  - COUGH [None]
  - DRUG ADMINISTRATION ERROR [None]
  - ERYTHRODERMIC PSORIASIS [None]
  - LACRIMATION INCREASED [None]
  - RASH GENERALISED [None]
  - RHINORRHOEA [None]
  - SNEEZING [None]
  - URTICARIA [None]
  - VOMITING [None]
